FAERS Safety Report 9855206 (Version 3)
Quarter: 2016Q3

REPORT INFORMATION
  Report Type: Spontaneous
  Country: US (occurrence: US)
  Receive Date: 20140130
  Receipt Date: 20160719
  Transmission Date: 20161109
  Serious: Yes (Life-Threatening, Hospitalization)
  Sender: FDA-Public Use
  Company Number: US-BAYER-2014-013192

PATIENT
  Age: 18 Year
  Sex: Female
  Weight: 61.22 kg

DRUGS (2)
  1. ANALPRAM HC [Concomitant]
     Active Substance: HYDROCORTISONE ACETATE\PRAMOXINE HYDROCHLORIDE
     Dosage: 2.5-1% THREE TO FOUR TIMES DAILY
     Dates: start: 201202
  2. MIRENA [Suspect]
     Active Substance: LEVONORGESTREL
     Indication: CONTRACEPTION
     Dosage: 20 MCG/24HR, CONT
     Route: 015
     Dates: start: 20120330, end: 20120417

REACTIONS (8)
  - Anhedonia [None]
  - Injury [None]
  - Anxiety [None]
  - Emotional distress [None]
  - Abdominal pain lower [None]
  - General physical health deterioration [None]
  - Pain [None]
  - Uterine perforation [None]

NARRATIVE: CASE EVENT DATE: 201204
